FAERS Safety Report 18230927 (Version 1)
Quarter: 2020Q3

REPORT INFORMATION
  Report Type: Spontaneous
  Country: FR (occurrence: FR)
  Receive Date: 20200904
  Receipt Date: 20200904
  Transmission Date: 20201103
  Serious: Yes (Death, Other)
  Sender: FDA-Public Use
  Company Number: FR-AUROBINDO-AUR-APL-2020-045771

PATIENT
  Age: 62 Year
  Sex: Male

DRUGS (14)
  1. AMOXICILLIN. [Suspect]
     Active Substance: AMOXICILLIN
     Indication: PRODUCT USED FOR UNKNOWN INDICATION
     Dosage: UNK
     Route: 048
     Dates: start: 20200429, end: 20200509
  2. AMOXICILLIN. [Suspect]
     Active Substance: AMOXICILLIN
     Indication: OSTEOMYELITIS
  3. VANCOMYCINE MYLAN [Suspect]
     Active Substance: VANCOMYCIN
     Indication: OSTEOMYELITIS
  4. CEFOTAXIME SODIUM [Suspect]
     Active Substance: CEFOTAXIME SODIUM
     Indication: OSTEOMYELITIS
  5. METRONIDAZOLE. [Suspect]
     Active Substance: METRONIDAZOLE
     Indication: OSTEOMYELITIS
  6. ACTISKENAN [Suspect]
     Active Substance: MORPHINE SULFATE
     Indication: PRODUCT USED FOR UNKNOWN INDICATION
     Dosage: UNK
     Route: 048
     Dates: start: 20200626
  7. CEFOTAXIME SODIUM [Suspect]
     Active Substance: CEFOTAXIME SODIUM
     Indication: PRODUCT USED FOR UNKNOWN INDICATION
     Dosage: 3 GRAM
     Route: 042
     Dates: start: 20200619, end: 20200622
  8. VANCOMYCINE MYLAN [Suspect]
     Active Substance: VANCOMYCIN
     Indication: PRODUCT USED FOR UNKNOWN INDICATION
     Dosage: 2.6 GRAM
     Route: 042
     Dates: start: 20200622, end: 20200716
  9. ESCITALOPRAM [Suspect]
     Active Substance: ESCITALOPRAM OXALATE
     Indication: PRODUCT USED FOR UNKNOWN INDICATION
     Dosage: 20 MILLIGRAM
     Route: 048
     Dates: start: 20200619, end: 20200720
  10. ESCITALOPRAM [Suspect]
     Active Substance: ESCITALOPRAM OXALATE
     Indication: DEPRESSION
  11. METRONIDAZOLE. [Suspect]
     Active Substance: METRONIDAZOLE
     Indication: PRODUCT USED FOR UNKNOWN INDICATION
     Dosage: 1500 MILLIGRAM
     Route: 048
     Dates: start: 20200619, end: 20200622
  12. ACTISKENAN [Suspect]
     Active Substance: MORPHINE SULFATE
     Indication: PAIN
  13. CLINDAMYCINE MYLAN [Suspect]
     Active Substance: CLINDAMYCIN
     Indication: PRODUCT USED FOR UNKNOWN INDICATION
     Dosage: 2400 MILLIGRAM
     Route: 048
     Dates: start: 20200622, end: 20200716
  14. CLINDAMYCINE MYLAN [Suspect]
     Active Substance: CLINDAMYCIN
     Indication: OSTEOMYELITIS

REACTIONS (1)
  - Drug reaction with eosinophilia and systemic symptoms [Fatal]

NARRATIVE: CASE EVENT DATE: 20200715
